FAERS Safety Report 5632186-5 (Version None)
Quarter: 2008Q1

REPORT INFORMATION
  Report Type: 
  Country: None (occurrence: None)
  Receive Date: 20080220
  Receipt Date: 20080206
  Transmission Date: 20080703
  Serious: Yes (Hospitalization, Other)
  Sender: FDA-Public Use
  Company Number: FR-RANBAXY-2008US-13058

PATIENT

DRUGS (1)
  1. ISOPTIN SR [Suspect]
     Indication: FACIAL PAIN
     Dosage: 720 MG, SINGLE

REACTIONS (1)
  - NECROSIS [None]
